FAERS Safety Report 9802342 (Version 3)
Quarter: 2014Q1

REPORT INFORMATION
  Report Type: Spontaneous
  Country: US (occurrence: US)
  Receive Date: 20140107
  Receipt Date: 20140128
  Transmission Date: 20141002
  Serious: Yes (Hospitalization, Other)
  Sender: FDA-Public Use
  Company Number: US-US-EMD SERONO, INC.-235624K07USA

PATIENT
  Age: 50 Year
  Sex: Female
  Weight: 75 kg

DRUGS (2)
  1. REBIF [Suspect]
     Indication: MULTIPLE SCLEROSIS
     Route: 058
     Dates: start: 20040806, end: 200701
  2. REBIF [Suspect]
     Route: 058
     Dates: start: 200708, end: 200801

REACTIONS (2)
  - Breast cancer [Recovering/Resolving]
  - Immune system disorder [Unknown]
